FAERS Safety Report 18351439 (Version 1)
Quarter: 2020Q4

REPORT INFORMATION
  Report Type: Spontaneous
  Country: US (occurrence: US)
  Receive Date: 20201006
  Receipt Date: 20201006
  Transmission Date: 20210114
  Serious: Yes (Other)
  Sender: FDA-Public Use
  Company Number: US-PURDUE-USA-2020-0168968

PATIENT
  Sex: Male

DRUGS (6)
  1. LORAZEPAM. [Concomitant]
     Active Substance: LORAZEPAM
     Dosage: 0.5 MG, Q12H
     Route: 048
  2. LORAZEPAM. [Concomitant]
     Active Substance: LORAZEPAM
     Dosage: 1 MG, Q12H
     Route: 048
  3. IMODIUM [Suspect]
     Active Substance: LOPERAMIDE HYDROCHLORIDE
     Dosage: 300 MG, DAILY
     Route: 048
  4. LORAZEPAM. [Concomitant]
     Active Substance: LORAZEPAM
     Indication: PRODUCT USED FOR UNKNOWN INDICATION
     Dosage: 1 MG, Q8H
     Route: 048
  5. IMODIUM [Suspect]
     Active Substance: LOPERAMIDE HYDROCHLORIDE
     Indication: DRUG WITHDRAWAL SYNDROME
     Dosage: 80 MG, DAILY
     Route: 048
  6. OXYCONTIN [Suspect]
     Active Substance: OXYCODONE HYDROCHLORIDE
     Indication: FOOT FRACTURE
     Dosage: UNKNOWN
     Route: 048

REACTIONS (15)
  - Overdose [Unknown]
  - Intentional product misuse [Unknown]
  - Drug dependence [Unknown]
  - Drug abuse [Unknown]
  - Pain [Unknown]
  - Drug withdrawal syndrome [Unknown]
  - Personality change [Unknown]
  - Suicide attempt [Unknown]
  - Illness [Unknown]
  - Injury [Unknown]
  - Seizure [Unknown]
  - Accidental overdose [Unknown]
  - Road traffic accident [Unknown]
  - Emotional distress [Unknown]
  - Depression [Unknown]

NARRATIVE: CASE EVENT DATE: 2013
